FAERS Safety Report 9016074 (Version 1)
Quarter: 2013Q1

REPORT INFORMATION
  Report Type: Spontaneous
  Country: US (occurrence: US)
  Receive Date: 20130116
  Receipt Date: 20130116
  Transmission Date: 20140127
  Serious: No
  Sender: FDA-Public Use
  Company Number: US-009507513-1301USA006518

PATIENT
  Sex: Female

DRUGS (4)
  1. VYTORIN [Suspect]
     Indication: BLOOD CHOLESTEROL
     Dosage: 10/40 MG
     Route: 048
     Dates: start: 201207
  2. ZETIA [Concomitant]
     Dosage: UNK
  3. CRESTOR [Concomitant]
  4. PAXIL [Concomitant]

REACTIONS (3)
  - Arthralgia [Recovered/Resolved]
  - Muscular weakness [Recovered/Resolved]
  - Asthenia [Recovered/Resolved]
